FAERS Safety Report 16002485 (Version 4)
Quarter: 2019Q4

REPORT INFORMATION
  Report Type: Spontaneous
  Country: US (occurrence: US)
  Receive Date: 20190225
  Receipt Date: 20191206
  Transmission Date: 20200122
  Serious: Yes (Hospitalization, Other)
  Sender: FDA-Public Use
  Company Number: US-SA-2018SA310302

PATIENT
  Age: 76 Year
  Sex: Female
  Weight: 63.4 kg

DRUGS (3)
  1. PRALUENT [Suspect]
     Active Substance: ALIROCUMAB
     Indication: CARDIOVASCULAR DISORDER
     Dosage: 75 MG, QOW
     Route: 058
     Dates: start: 2019
  2. PRALUENT [Suspect]
     Active Substance: ALIROCUMAB
     Indication: BLOOD CHOLESTEROL
  3. REPATHA [Concomitant]
     Active Substance: EVOLOCUMAB
     Dosage: UNK

REACTIONS (8)
  - Shoulder arthroplasty [Unknown]
  - Pneumonia [Unknown]
  - Knee arthroplasty [Unknown]
  - Device operational issue [Unknown]
  - Product storage error [Unknown]
  - Influenza [Unknown]
  - Stent placement [Unknown]
  - Product dose omission [Unknown]

NARRATIVE: CASE EVENT DATE: 20191101
